FAERS Safety Report 8851852 (Version 1)
Quarter: 2012Q4

REPORT INFORMATION
  Report Type: 
  Country: US (occurrence: US)
  Receive Date: 20121022
  Receipt Date: 20121022
  Transmission Date: 20130627
  Serious: No
  Sender: FDA-Public Use
  Company Number: US-009507513-1210USA005018

PATIENT
  Sex: Female

DRUGS (2)
  1. IMPLANON [Suspect]
     Indication: CONTRACEPTION
     Dosage: UNK
     Dates: start: 201207
  2. HUMIRA [Concomitant]
     Indication: PSORIASIS
     Dosage: 40 mg, 1 in 2 week
     Route: 058
     Dates: start: 2008

REACTIONS (2)
  - Weight increased [Unknown]
  - Alopecia [Unknown]
